FAERS Safety Report 14906498 (Version 1)
Quarter: 2018Q2

REPORT INFORMATION
  Report Type: Report from Study
  Country: DE (occurrence: DE)
  Receive Date: 20180517
  Receipt Date: 20180517
  Transmission Date: 20180711
  Serious: Yes (Hospitalization)
  Sender: FDA-Public Use
  Company Number: DE-BRISTOL-MYERS SQUIBB COMPANY-BMS-2018-039769

PATIENT
  Age: 51 Year
  Sex: Female

DRUGS (6)
  1. BLINDED PLACEBO [Suspect]
     Active Substance: INVESTIGATIONAL PRODUCT
     Indication: PRODUCT USED FOR UNKNOWN INDICATION
     Dosage: 124 ML, UNK
     Route: 065
     Dates: start: 20180424, end: 20180424
  2. BLINDED NIVOLUMAB [Suspect]
     Active Substance: NIVOLUMAB
     Indication: RENAL CELL CARCINOMA
     Dosage: 250 ML, UNK
     Route: 065
     Dates: start: 20171219, end: 20171219
  3. BLINDED IPILIMUMAB [Suspect]
     Active Substance: IPILIMUMAB
     Indication: RENAL CELL CARCINOMA
     Dosage: 250 ML, UNK
     Route: 065
     Dates: start: 20171219, end: 20171219
  4. BLINDED IPILIMUMAB [Suspect]
     Active Substance: IPILIMUMAB
     Indication: PRODUCT USED FOR UNKNOWN INDICATION
     Dosage: 124 ML, UNK
     Route: 065
     Dates: start: 20180424, end: 20180424
  5. BLINDED NIVOLUMAB [Suspect]
     Active Substance: NIVOLUMAB
     Indication: PRODUCT USED FOR UNKNOWN INDICATION
     Dosage: 124 ML, UNK
     Route: 065
     Dates: start: 20180424, end: 20180424
  6. BLINDED PLACEBO [Suspect]
     Active Substance: INVESTIGATIONAL PRODUCT
     Indication: RENAL CELL CARCINOMA
     Dosage: 250 ML, UNK
     Route: 065
     Dates: start: 20171219, end: 20171219

REACTIONS (1)
  - Hyponatraemia [Recovering/Resolving]

NARRATIVE: CASE EVENT DATE: 20180424
